FAERS Safety Report 6538001-X (Version None)
Quarter: 2010Q1

REPORT INFORMATION
  Report Type: 
  Country: None (occurrence: None)
  Receive Date: 20100111
  Receipt Date: 20100105
  Transmission Date: 20100710
  Serious: Yes (Other)
  Sender: FDA-Public Use
  Company Number: 2009SP042781

PATIENT
  Age: 61 Year
  Sex: Female

DRUGS (7)
  1. DIPROPHOS (BETAMETHASONE SODIUM PHOSPHATE/DIPROPIONATE) (BETAMETHASONE [Suspect]
     Indication: HEADACHE
     Dosage: 1 DF; QM;
     Dates: start: 20091102, end: 20091203
  2. SPASMOLINE (ALVERINI CITRAS) [Concomitant]
  3. LETROX [Concomitant]
  4. ODNOVID (VITAMINS + MINERALS) [Concomitant]
  5. POLIMESILAT (PRIDINOLE) [Concomitant]
  6. VITAMIN B1 TAB [Concomitant]
  7. NIMESIL [Concomitant]

REACTIONS (4)
  - AORTIC ANEURYSM [None]
  - CONDITION AGGRAVATED [None]
  - HEADACHE [None]
  - VOMITING [None]
